FAERS Safety Report 8609995-3 (Version None)
Quarter: 2012Q3

REPORT INFORMATION
  Report Type: 
  Country: None (occurrence: None)
  Receive Date: 20120822
  Receipt Date: 20120718
  Transmission Date: 20120928
  Serious: Yes (Hospitalization)
  Sender: FDA-Public Use
  Company Number: JP-009507513-1208JPN005072

PATIENT

DRUGS (15)
  1. AMLODIPINE BESYLATE [Concomitant]
     Indication: HYPERTENSION
     Dosage: 5 MG ONCE
     Route: 048
  2. NO. 4 A ANTIPYRETIC ANALGESIC [Concomitant]
     Indication: RENAL IMPAIRMENT
     Dosage: 500 ML ONCE
     Route: 051
     Dates: start: 20120330, end: 20120522
  3. ACTOS [Concomitant]
     Indication: DIABETES MELLITUS
     Dosage: 15 MG ONCE
     Route: 048
  4. VITAMEDIN [Concomitant]
     Indication: METABOLIC DISORDER
     Dosage: 1 DF ONCE
     Route: 051
     Dates: start: 20120330, end: 20120602
  5. PEG-INTRON [Suspect]
     Indication: HEPATITIS C
     Dosage: 1.36MCG/KG/WEEK
     Route: 058
     Dates: start: 20120327
  6. REBETOL [Suspect]
     Indication: HEPATITIS C
     Route: 048
     Dates: start: 20120327, end: 20120528
  7. AMARYL [Concomitant]
     Indication: DIABETES MELLITUS
     Dosage: 0.5 MG ONCE
     Route: 048
  8. TPN ELECTROLYTES IN PLASTIC CONTAINER [Concomitant]
     Indication: MEDICAL DIET
     Dosage: 500 ML ONCE
     Route: 051
     Dates: start: 20120523, end: 20120602
  9. PEG-INTRON [Suspect]
     Dosage: 1.5MCG/KG/WEEK
     Route: 058
     Dates: end: 20120529
  10. TELAVIC [Suspect]
     Indication: HEPATITIS C
     Route: 048
     Dates: start: 20120327, end: 20120521
  11. PREDONINE [Concomitant]
     Indication: RASH
     Dosage: 30 MG ONCE
     Route: 048
     Dates: start: 20120410, end: 20120602
  12. NAPROXEN [Concomitant]
     Indication: PROPHYLAXIS
     Dosage: 100MG/DAY, AS NEEDED
     Route: 048
  13. MALFA [Concomitant]
     Indication: GASTRITIS
     Dosage: 30 ML ONCE
     Route: 048
     Dates: start: 20120528, end: 20120602
  14. RABEPRAZOLE SODIUM [Concomitant]
     Indication: GASTROOESOPHAGEAL REFLUX DISEASE
     Dosage: 10 MG, ONCE
     Route: 048
  15. FAMOTIDINE [Concomitant]
     Dosage: 40 MG ONCE
     Route: 048
     Dates: start: 20120418, end: 20120602

REACTIONS (5)
  - HYPERURICAEMIA [None]
  - DYSGEUSIA [None]
  - ANAEMIA [None]
  - DECREASED APPETITE [None]
  - MALNUTRITION [None]
